FAERS Safety Report 9624603 (Version 2)
Quarter: 2013Q4

REPORT INFORMATION
  Report Type: Spontaneous
  Country: US (occurrence: US)
  Receive Date: 20131015
  Receipt Date: 20131113
  Transmission Date: 20140711
  Serious: Yes (Hospitalization)
  Sender: FDA-Public Use
  Company Number: US-FRI-1000050001

PATIENT
  Age: 83 Year
  Sex: Male
  Weight: 75.7 kg

DRUGS (6)
  1. NAMENDA XR [Suspect]
     Indication: DEMENTIA
     Dosage: 7 MG
     Route: 048
     Dates: start: 201309, end: 201309
  2. NAMENDA XR [Suspect]
     Indication: DEMENTIA
     Dosage: 14 MG
     Route: 048
     Dates: start: 201309, end: 2013
  3. NAMENDA [Suspect]
     Indication: DEMENTIA
     Dosage: 5 MG
     Route: 048
     Dates: start: 2013, end: 20131007
  4. PLAVIX [Concomitant]
  5. LOSARTAN [Concomitant]
     Indication: HYPERTENSION
  6. LESCOL [Concomitant]

REACTIONS (4)
  - Heart rate decreased [Recovered/Resolved]
  - Asthenia [Recovered/Resolved]
  - Gait disturbance [Recovered/Resolved]
  - Fatigue [Recovered/Resolved]
